FAERS Safety Report 23105252 (Version 1)
Quarter: 2023Q4

REPORT INFORMATION
  Report Type: Spontaneous
  Country: US (occurrence: None)
  Receive Date: 20231023
  Receipt Date: 20231023
  Transmission Date: 20240110
  Serious: Yes (Hospitalization)
  Sender: FDA-Public Use
  Company Number: None

PATIENT
  Age: 87 Year
  Sex: Male

DRUGS (2)
  1. ENOXAPARIN [Suspect]
     Active Substance: ENOXAPARIN
     Dates: start: 20220915
  2. ASPIRIN PAIN RELIVER [Suspect]
     Active Substance: ASPIRIN
     Dates: start: 20071015, end: 20221102

REACTIONS (2)
  - Haemorrhage [None]
  - Haematoma muscle [None]

NARRATIVE: CASE EVENT DATE: 20221022
